FAERS Safety Report 6142522-1 (Version None)
Quarter: 2009Q2

REPORT INFORMATION
  Report Type: 
  Country: None (occurrence: None)
  Receive Date: 20090403
  Receipt Date: 20070709
  Transmission Date: 20091009
  Serious: Yes (Other)
  Sender: FDA-Public Use
  Company Number: US-ASTRAZENECA-2006UW10840

PATIENT
  Age: 14603 Day
  Sex: Male
  Weight: 95.3 kg

DRUGS (39)
  1. SEROQUEL [Suspect]
     Indication: DEPRESSION
     Dosage: 25-800 MG
     Route: 048
     Dates: start: 19991103
  2. RISPERDAL [Concomitant]
  3. PAXIL [Concomitant]
     Dates: start: 19990806
  4. DIPHENHYDRAMINE [Concomitant]
     Dates: start: 19990519
  5. TRAZODONE [Concomitant]
     Dates: start: 19990330
  6. LOTENSIN [Concomitant]
     Dates: start: 19990619
  7. INSULIN [Concomitant]
  8. ACETAMINOPHEN [Concomitant]
  9. ASPIRIN [Concomitant]
  10. ATENOLOL [Concomitant]
  11. DOCUSATE SODIUM [Concomitant]
  12. ENALAPRIL MALEATE [Concomitant]
  13. PAROXETINE HCL [Concomitant]
  14. SENNA [Concomitant]
  15. MORPHINE SULFATE [Concomitant]
  16. PROMETHAZINE HCL [Concomitant]
  17. GLUCAGON [Concomitant]
  18. LORAZEPAM [Concomitant]
  19. MAGNESIUM HYDROCHLORIDE [Concomitant]
  20. ZOLPIDEM [Concomitant]
  21. NITROGLYCERIN [Concomitant]
  22. ATROPINE [Concomitant]
  23. EPINEPHRINE [Concomitant]
  24. ASPIRIN [Concomitant]
  25. PROTONIX [Concomitant]
  26. LOVENOX [Concomitant]
  27. PHENERGAN [Concomitant]
  28. ATIVAN [Concomitant]
  29. AMBIEN [Concomitant]
  30. ZOFRAN [Concomitant]
  31. BENADRYL [Concomitant]
  32. PROZAC [Concomitant]
  33. IBUPROFEN [Concomitant]
  34. RANITIDINE [Concomitant]
  35. CARISOPRODOL [Concomitant]
  36. CEPHALEXIN [Concomitant]
  37. HYDROCODONE BITARTRATE [Concomitant]
  38. DILTIAZEM [Concomitant]
  39. PANTOPRAZOLE SODIUM [Concomitant]

REACTIONS (17)
  - ANGINA UNSTABLE [None]
  - BACK INJURY [None]
  - BACK PAIN [None]
  - BLOOD URINE PRESENT [None]
  - CHEST PAIN [None]
  - CONTUSION [None]
  - DEEP VEIN THROMBOSIS [None]
  - DEHYDRATION [None]
  - DIABETES MELLITUS [None]
  - DIARRHOEA [None]
  - JOINT SPRAIN [None]
  - MUSCULOSKELETAL PAIN [None]
  - NEURALGIA [None]
  - ORTHOSTATIC HYPERTENSION [None]
  - PALPITATIONS [None]
  - PNEUMONIA VIRAL [None]
  - SUICIDAL IDEATION [None]
